FAERS Safety Report 17121667 (Version 1)
Quarter: 2019Q4

REPORT INFORMATION
  Report Type: Spontaneous
  Country: JP (occurrence: JP)
  Receive Date: 20191206
  Receipt Date: 20191206
  Transmission Date: 20200122
  Serious: Yes (Other)
  Sender: FDA-Public Use
  Company Number: JP-GLAXOSMITHKLINE-JP2019JPN218351

PATIENT
  Age: 45 Year
  Sex: Female

DRUGS (1)
  1. FLOLAN [Suspect]
     Active Substance: EPOPROSTENOL SODIUM
     Indication: PULMONARY ARTERIAL HYPERTENSION
     Dosage: UNK
     Route: 042
     Dates: start: 2012

REACTIONS (3)
  - Immunoglobulin G4 related disease [Unknown]
  - Swelling of eyelid [Unknown]
  - Swelling face [Unknown]

NARRATIVE: CASE EVENT DATE: 201904
